FAERS Safety Report 18207357 (Version 1)
Quarter: 2020Q3

REPORT INFORMATION
  Report Type: Spontaneous
  Country: US (occurrence: US)
  Receive Date: 20200828
  Receipt Date: 20200828
  Transmission Date: 20201103
  Serious: No
  Sender: FDA-Public Use
  Company Number: None

PATIENT
  Age: 43 Year
  Sex: Male

DRUGS (4)
  1. CARBOPLATIN. [Suspect]
     Active Substance: CARBOPLATIN
     Indication: NASOPHARYNGEAL CANCER
     Dosage: ?          OTHER FREQUENCY:ONE TIME INFUSION;?
     Route: 043
     Dates: start: 20200826, end: 20200826
  2. FAMOTIDINE 20 MG IVP [Concomitant]
     Dates: start: 20200826, end: 20200826
  3. HYDROCORTISONE 100 MG IVP [Concomitant]
     Dates: start: 20200826, end: 20200826
  4. DIPHENHYDRAMINE 25 MG IVP [Concomitant]
     Dates: start: 20200826, end: 20200826

REACTIONS (1)
  - Chest pain [None]

NARRATIVE: CASE EVENT DATE: 20200826
